FAERS Safety Report 9795114 (Version 2)
Quarter: 2015Q4

REPORT INFORMATION
  Report Type: Report from Study
  Country: US (occurrence: US)
  Receive Date: 20140103
  Receipt Date: 20151207
  Transmission Date: 20160305
  Serious: Yes (Other)
  Sender: FDA-Public Use
  Company Number: US-ROCHE-1312794

PATIENT
  Sex: Male
  Weight: 66.56 kg

DRUGS (20)
  1. ATRIPLA [Concomitant]
     Active Substance: EFAVIRENZ\EMTRICITABINE\TENOFOVIR DISOPROXIL FUMARATE
     Dosage: 600-200 MG
     Route: 048
  2. DEXAMETHASONE. [Concomitant]
     Active Substance: DEXAMETHASONE
     Dosage: 2 TWICE A DAY THE DAY BEFORE CHEMOTHERAPY
     Route: 048
  3. CARBOPLATIN. [Concomitant]
     Active Substance: CARBOPLATIN
     Route: 042
     Dates: start: 20120706
  4. ASPIRIN. [Concomitant]
     Active Substance: ASPIRIN
     Route: 048
  5. ATRIPLA [Concomitant]
     Active Substance: EFAVIRENZ\EMTRICITABINE\TENOFOVIR DISOPROXIL FUMARATE
     Dosage: 600-200MG
     Route: 048
  6. ZOFRAN ODT [Concomitant]
     Active Substance: ONDANSETRON HYDROCHLORIDE
     Route: 048
  7. NORMAL SALINE [Concomitant]
     Active Substance: SODIUM CHLORIDE
     Route: 065
  8. AVASTIN [Suspect]
     Active Substance: BEVACIZUMAB
     Indication: LUNG NEOPLASM MALIGNANT
     Dosage: MIX IN 100 ML NORMAL SALINE, 27/JUL/2012, 17/AUG/2012
     Route: 040
     Dates: start: 20120706
  9. DEXAMETHASONE. [Concomitant]
     Active Substance: DEXAMETHASONE
     Route: 042
  10. PACLITAXEL. [Concomitant]
     Active Substance: PACLITAXEL
     Dosage: 324 MG
     Route: 042
     Dates: start: 20120706
  11. HYDROCORTISONE SODIUM SUCCINATE [Concomitant]
     Active Substance: HYDROCORTISONE SODIUM SUCCINATE
     Dosage: PM
     Route: 042
  12. PROMETHAZINE HCL [Concomitant]
     Active Substance: PROMETHAZINE HYDROCHLORIDE
     Route: 048
  13. RANITIDINE HCL [Concomitant]
     Active Substance: RANITIDINE HYDROCHLORIDE
     Route: 042
  14. METHYLPREDNISOLONE SODIUM SUCCINATE. [Concomitant]
     Active Substance: METHYLPREDNISOLONE SODIUM SUCCINATE
     Route: 065
  15. PALONOSETRON HYDROCHLORIDE. [Concomitant]
     Active Substance: PALONOSETRON HYDROCHLORIDE
     Route: 042
  16. CHANTIX [Concomitant]
     Active Substance: VARENICLINE TARTRATE
     Dosage: TAKE ONE A DAY FOR 3 DAYS THEN TWICE A DAY
     Route: 048
  17. DIPHENHYDRAMINE HCL [Concomitant]
     Active Substance: DIPHENHYDRAMINE HYDROCHLORIDE
     Route: 042
  18. DIPHENHYDRAMINE HCL [Concomitant]
     Active Substance: DIPHENHYDRAMINE HYDROCHLORIDE
     Dosage: PRN HYPERSENSITIVITY REACTION
     Route: 042
  19. ATIVAN [Concomitant]
     Active Substance: LORAZEPAM
     Route: 048
  20. HYDROCODONE BITARTRATE/ACETAMINOPHEN [Concomitant]
     Active Substance: ACETAMINOPHEN\HYDROCODONE BITARTRATE
     Dosage: 10 MG-325 MG
     Route: 048

REACTIONS (13)
  - Diarrhoea [Recovered/Resolved]
  - Cough [Unknown]
  - Skin cancer [Unknown]
  - Nocturia [Unknown]
  - Nipple pain [Recovering/Resolving]
  - Ear discomfort [Unknown]
  - Blood cholesterol increased [Unknown]
  - Weight increased [Unknown]
  - Insomnia [Unknown]
  - Gynaecomastia [Unknown]
  - Abdominal pain lower [Recovered/Resolved]
  - Fatigue [Unknown]
  - Weight decreased [Recovering/Resolving]
